FAERS Safety Report 7472955-2 (Version None)
Quarter: 2011Q2

REPORT INFORMATION
  Report Type: 
  Country: None (occurrence: None)
  Receive Date: 20110503
  Receipt Date: 20110418
  Transmission Date: 20111010
  Serious: Yes (Other)
  Sender: FDA-Public Use
  Company Number: 030605

PATIENT
  Sex: Female
  Weight: 90.7 kg

DRUGS (12)
  1. FOLIC ACID [Concomitant]
  2. CALCIUM W/VITAMIN D [Concomitant]
  3. FIORICET [Concomitant]
  4. KLONOPIN [Concomitant]
  5. LOTREL [Concomitant]
  6. LOPRESSOR [Concomitant]
  7. ALLEGRA D 24 HOUR [Concomitant]
  8. SYNTHROID [Concomitant]
  9. CIMZIA [Suspect]
     Indication: RHEUMATOID ARTHRITIS
     Dosage: 400 MG  1X/MONTH, 2 SHOTS, SUBCUTANEOUS
     Route: 058
     Dates: start: 20110130, end: 20110226
  10. PREDNISONE [Concomitant]
  11. LIDODERM [Concomitant]
  12. MOTRIN [Concomitant]

REACTIONS (10)
  - MIGRAINE [None]
  - ARTHRALGIA [None]
  - NASAL DISCOMFORT [None]
  - NECK PAIN [None]
  - DRY SKIN [None]
  - PARAESTHESIA ORAL [None]
  - ERYTHEMA [None]
  - PSORIASIS [None]
  - DRY EYE [None]
  - PRURITUS GENERALISED [None]
